FAERS Safety Report 8447882-4 (Version None)
Quarter: 2012Q2

REPORT INFORMATION
  Report Type: 
  Country: None (occurrence: None)
  Receive Date: 20120617
  Receipt Date: 20120604
  Transmission Date: 20120825
  Serious: Yes (Hospitalization)
  Sender: FDA-Public Use
  Company Number: 2012SP026327

PATIENT
  Age: 40 Year
  Sex: Male

DRUGS (4)
  1. SYCREST (ASENAPINE / 05706901/ ) [Suspect]
     Indication: BIPOLAR DISORDER
     Dosage: 10 MG;ONCE;SL
     Route: 060
     Dates: start: 20120514, end: 20120514
  2. DELORAZEPAM [Concomitant]
  3. DEPAKENE [Concomitant]
  4. LAMICTAL [Concomitant]

REACTIONS (7)
  - DYSPNOEA [None]
  - RESTLESSNESS [None]
  - BLOOD PRESSURE SYSTOLIC DECREASED [None]
  - HEART RATE DECREASED [None]
  - BLOOD PRESSURE DIASTOLIC DECREASED [None]
  - PRESYNCOPE [None]
  - CARDIOPULMONARY FAILURE [None]
